FAERS Safety Report 14205783 (Version 1)
Quarter: 2017Q4

REPORT INFORMATION
  Report Type: Report from Study
  Country: IN (occurrence: IN)
  Receive Date: 20171120
  Receipt Date: 20171120
  Transmission Date: 20180321
  Serious: Yes (Other)
  Sender: FDA-Public Use
  Company Number: IN-MYLANLABS-2017M1073222

PATIENT

DRUGS (2)
  1. TOPOTECAN [Suspect]
     Active Substance: TOPOTECAN HYDROCHLORIDE
     Indication: RETINOBLASTOMA
     Dosage: 20 MICROG
     Route: 047
  2. MELPHALAN. [Suspect]
     Active Substance: MELPHALAN
     Indication: RETINOBLASTOMA
     Dosage: 20 MICROG
     Route: 047

REACTIONS (7)
  - Iris atrophy [Unknown]
  - Ocular vascular disorder [Unknown]
  - Conjunctival haemorrhage [Unknown]
  - Vitreous haemorrhage [Unknown]
  - Subretinal fibrosis [Unknown]
  - Heterochromia iridis [Unknown]
  - Iris adhesions [Unknown]
